FAERS Safety Report 9405872 (Version 3)
Quarter: 2014Q1

REPORT INFORMATION
  Report Type: Spontaneous
  Country: US (occurrence: US)
  Receive Date: 20130717
  Receipt Date: 20140320
  Transmission Date: 20141002
  Serious: Yes (Death, Hospitalization)
  Sender: FDA-Public Use
  Company Number: US-GLAXOSMITHKLINE-A1033259A

PATIENT
  Age: 68 Year
  Sex: Male

DRUGS (11)
  1. AVANDIA [Suspect]
     Indication: DIABETES MELLITUS
     Route: 048
     Dates: start: 20030514
  2. GLUCOTROL [Concomitant]
  3. INSULIN [Concomitant]
  4. LISINOPRIL [Concomitant]
  5. AMIODARONE [Concomitant]
  6. COUMADIN [Concomitant]
  7. WELLBUTRIN [Concomitant]
  8. LIPITOR [Concomitant]
  9. COREG [Concomitant]
  10. LASIX [Concomitant]
  11. POTASSIUM [Concomitant]

REACTIONS (7)
  - Cardiac failure congestive [Fatal]
  - Cardiomyopathy [Fatal]
  - Coronary artery disease [Fatal]
  - Cardiac failure chronic [Unknown]
  - Cardiac disorder [Unknown]
  - Stent placement [Unknown]
  - Surgery [Unknown]
